FAERS Safety Report 9205558 (Version 3)
Quarter: 2013Q3

REPORT INFORMATION
  Report Type: Spontaneous
  Country: JP (occurrence: JP)
  Receive Date: 20130403
  Receipt Date: 20130826
  Transmission Date: 20140515
  Serious: Yes (Hospitalization)
  Sender: FDA-Public Use
  Company Number: JP-009507513-1303JPN008050

PATIENT
  Age: 68 Year
  Sex: Male

DRUGS (5)
  1. JANUVIA TABLETS 50MG [Suspect]
     Indication: TYPE 2 DIABETES MELLITUS
     Dosage: 50 MG, QD
     Route: 048
     Dates: start: 20120914
  2. AMARYL [Concomitant]
     Indication: TYPE 2 DIABETES MELLITUS
     Dosage: 3 MG, BID
     Route: 048
  3. SEIBULE [Concomitant]
     Indication: TYPE 2 DIABETES MELLITUS
     Dosage: 50 MG, TID
     Route: 048
  4. MEDET [Concomitant]
     Indication: TYPE 2 DIABETES MELLITUS
     Dosage: 250 MG, TID
  5. ALLORIN [Concomitant]
     Indication: HYPERURICAEMIA
     Dosage: 100 MG, UNK
     Route: 048

REACTIONS (2)
  - Interstitial lung disease [Recovered/Resolved]
  - Nasopharyngitis [Unknown]
